FAERS Safety Report 5387666-7 (Version None)
Quarter: 2007Q3

REPORT INFORMATION
  Report Type: 
  Country: None (occurrence: None)
  Receive Date: 20070712
  Receipt Date: 20070712
  Transmission Date: 20080115
  Serious: Yes (Hospitalization)
  Sender: FDA-Public Use
  Company Number: None

PATIENT
  Age: 59 Year
  Sex: Female

DRUGS (15)
  1. CYTARABINE [Suspect]
     Indication: ACUTE MYELOID LEUKAEMIA
     Dosage: 6G Q12 IV
     Route: 042
     Dates: start: 20060206, end: 20060208
  2. DAUNORUBICIN  UNKNOWN [Suspect]
     Indication: ACUTE MYELOID LEUKAEMIA
     Dosage: UNKNOWN
  3. LASIX [Concomitant]
  4. DOCUSATE [Concomitant]
  5. GABAPENTIN [Concomitant]
  6. HEPARIN [Concomitant]
  7. INSULIN [Concomitant]
  8. ISOSORBIDE DINITRATE [Concomitant]
  9. LISINOPRIL [Concomitant]
  10. LOPRESSOR [Concomitant]
  11. ZOFRAN [Concomitant]
  12. PROTONIX [Concomitant]
  13. ALDACTONE [Concomitant]
  14. EFFEXOR [Concomitant]
  15. AMBIEN [Concomitant]

REACTIONS (4)
  - CARDIAC FAILURE CONGESTIVE [None]
  - CARDIOMYOPATHY [None]
  - LEUKOPENIA [None]
  - PYREXIA [None]
